FAERS Safety Report 7534658 (Version 6)
Quarter: 2012Q4

REPORT INFORMATION
  Report Type: Report from Study
  Country: CA (occurrence: CA)
  Receive Date: 20100810
  Receipt Date: 20120903
  Transmission Date: 20130627
  Serious: Yes (Hospitalization)
  Sender: FDA-Public Use
  Company Number: CA-BIOGENIDEC-2010BI026745

PATIENT
  Age: 51 Year
  Sex: Female
  Weight: 60 kg

DRUGS (10)
  1. TYSABRI [Suspect]
     Indication: MULTIPLE SCLEROSIS
     Route: 042
     Dates: start: 20080801, end: 20100623
  2. VITAMIN D [Concomitant]
     Indication: MULTIPLE SCLEROSIS
     Route: 048
     Dates: start: 20091214
  3. VITAMIN D [Concomitant]
     Indication: MULTIPLE SCLEROSIS
  4. MODAFINIL [Concomitant]
     Indication: SOMNOLENCE
     Route: 048
     Dates: start: 20090630
  5. MODAFINIL [Concomitant]
     Indication: SOMNOLENCE
  6. KETOROLAC [Concomitant]
     Indication: MUSCULOSKELETAL PAIN
     Route: 048
     Dates: start: 20090630
  7. TRIMEBUTINE [Concomitant]
     Indication: IRRITABLE BOWEL SYNDROME
     Route: 048
     Dates: start: 20080710
  8. TRIMEBUTINE [Concomitant]
     Indication: IRRITABLE BOWEL SYNDROME
  9. TAMSULOSIN [Concomitant]
     Indication: DRUG THERAPY
     Route: 048
     Dates: start: 20090729
  10. LYRICA [Concomitant]
     Indication: BURNING SENSATION

REACTIONS (1)
  - Myelodysplastic syndrome [Not Recovered/Not Resolved]
